FAERS Safety Report 9657600 (Version 1)
Quarter: 2013Q4

REPORT INFORMATION
  Report Type: Spontaneous
  Country: US (occurrence: US)
  Receive Date: 20131030
  Receipt Date: 20131030
  Transmission Date: 20140711
  Serious: Yes (Other)
  Sender: FDA-Public Use
  Company Number: US-NAPPMUNDI-USA-2011-0076314

PATIENT
  Sex: Female

DRUGS (1)
  1. OXYCONTIN TABLETS [Suspect]

REACTIONS (4)
  - Drug dependence [Unknown]
  - Intentional drug misuse [Unknown]
  - Emotional poverty [Unknown]
  - Euphoric mood [Unknown]
